FAERS Safety Report 13067573 (Version 4)
Quarter: 2017Q1

REPORT INFORMATION
  Report Type: Report from Study
  Country: None (occurrence: TR)
  Receive Date: 20161228
  Receipt Date: 20170330
  Transmission Date: 20170428
  Serious: Yes (Other)
  Sender: FDA-Public Use
  Company Number: TR-ABBVIE-16K-161-1821101-00

PATIENT
  Age: 77 Year
  Sex: Female
  Weight: 54 kg

DRUGS (10)
  1. PK MERZ [Concomitant]
     Active Substance: AMANTADINE SULFATE
     Indication: PARKINSON^S DISEASE
     Dosage: 3X0.5
     Route: 048
     Dates: start: 2000
  2. MOTILIUM [Concomitant]
     Active Substance: DOMPERIDONE
     Indication: NAUSEA
     Route: 048
     Dates: start: 20140513
  3. MALTOFER [Concomitant]
     Active Substance: IRON POLYMALTOSE
     Indication: VITAMIN SUPPLEMENTATION
     Route: 048
     Dates: start: 20140513
  4. DUODOPA [Suspect]
     Active Substance: CARBIDOPA\LEVODOPA
     Indication: PARKINSON^S DISEASE
     Dosage: MORNING DOSE: 8.0 ML, CONTINOUS DOSE: 3.7 ML, EXTRA DOSE: 1.0 ML
     Route: 050
     Dates: start: 20140513
  5. SPASMEX [Concomitant]
     Active Substance: TROSPIUM CHLORIDE
     Indication: INCONTINENCE
     Dosage: 2X2
     Route: 048
  6. ASTONIN [Concomitant]
     Indication: ORTHOSTATIC HYPOTENSION
     Route: 048
     Dates: start: 2012
  7. EXELON PATCH [Concomitant]
     Active Substance: RIVASTIGMINE
     Indication: MEMORY IMPAIRMENT
     Route: 062
     Dates: start: 2015
  8. MODIWAKE [Concomitant]
     Indication: PSYCHOTIC DISORDER
     Route: 048
  9. LEPONEX [Concomitant]
     Active Substance: CLOZAPINE
     Indication: PSYCHOTIC DISORDER
     Dosage: 1X1/3
     Route: 048
  10. VITAMIN D [Concomitant]
     Active Substance: CHOLECALCIFEROL
     Indication: VITAMIN SUPPLEMENTATION
     Route: 048
     Dates: start: 20140515

REACTIONS (4)
  - Cardiac hypertrophy [Unknown]
  - Arrhythmia [Unknown]
  - Asthenia [Recovered/Resolved]
  - Arteriosclerosis coronary artery [Unknown]

NARRATIVE: CASE EVENT DATE: 20161220
